FAERS Safety Report 9681497 (Version 1)
Quarter: 2013Q4

REPORT INFORMATION
  Report Type: Spontaneous
  Country: GB (occurrence: GB)
  Receive Date: 20131111
  Receipt Date: 20131111
  Transmission Date: 20140711
  Serious: Yes (Life-Threatening, Hospitalization, Other)
  Sender: FDA-Public Use
  Company Number: GB-PFIZER INC-2013317593

PATIENT
  Age: 68 Year
  Sex: Male

DRUGS (2)
  1. METHYLPREDNISOLONE ACETATE [Suspect]
     Indication: EPICONDYLITIS
     Dosage: 20 MG, UNK
     Route: 058
     Dates: start: 20131017
  2. LIDOCAINE HYDROCHLORIDE [Suspect]
     Indication: EPICONDYLITIS
     Dosage: 0.5 ML, UNK
     Route: 058
     Dates: start: 20131017

REACTIONS (5)
  - Syncope [Recovered/Resolved]
  - Respiratory arrest [Recovered/Resolved]
  - Cardiac arrest [Recovered/Resolved]
  - Hypotension [Recovered/Resolved]
  - Atrial fibrillation [Recovered/Resolved]
